FAERS Safety Report 8855454 (Version 1)
Quarter: 2012Q4

REPORT INFORMATION
  Report Type: 
  Country: US (occurrence: US)
  Receive Date: 20121023
  Receipt Date: 20121023
  Transmission Date: 20130627
  Serious: No
  Sender: FDA-Public Use
  Company Number: US-AMGEN-USASP2012054860

PATIENT
  Age: 39 Year
  Sex: Female
  Weight: 68.93 kg

DRUGS (2)
  1. ENBREL [Suspect]
     Indication: RHEUMATOID ARTHRITIS
     Dosage: 50 mg, qwk
     Route: 058
     Dates: start: 20110707
  2. METHOTREXATE [Concomitant]
     Indication: RHEUMATOID ARTHRITIS
     Dosage: 20 mg, qwk
     Route: 048
     Dates: start: 20110216

REACTIONS (2)
  - Rash [Recovered/Resolved]
  - Injection site pain [Not Recovered/Not Resolved]
